FAERS Safety Report 14672167 (Version 1)
Quarter: 2018Q1

REPORT INFORMATION
  Report Type: Spontaneous
  Country: RU (occurrence: RU)
  Receive Date: 20180323
  Receipt Date: 20180323
  Transmission Date: 20180509
  Serious: Yes (Other)
  Sender: FDA-Public Use
  Company Number: RU-ASTRAZENECA-2018SE34012

PATIENT
  Age: 61 Year
  Sex: Female
  Weight: 95 kg

DRUGS (6)
  1. FORXIGA [Suspect]
     Active Substance: DAPAGLIFLOZIN
     Indication: TYPE 2 DIABETES MELLITUS
     Route: 048
     Dates: start: 201703
  2. INSULIN [Concomitant]
     Active Substance: INSULIN NOS
  3. VALSACOR [Concomitant]
     Active Substance: VALSARTAN
  4. LORISTA [Concomitant]
     Active Substance: LOSARTAN POTASSIUM
  5. CONCOR [Concomitant]
     Active Substance: BISOPROLOL FUMARATE
  6. THROMBO ASS [Concomitant]
     Active Substance: ASPIRIN

REACTIONS (1)
  - Blood pressure increased [Not Recovered/Not Resolved]

NARRATIVE: CASE EVENT DATE: 201712
